FAERS Safety Report 4854200-7 (Version None)
Quarter: 2005Q4

REPORT INFORMATION
  Report Type: 
  Country: None (occurrence: None)
  Receive Date: 20051213
  Receipt Date: 20051201
  Transmission Date: 20060501
  Serious: Yes (Disabling, Other)
  Sender: FDA-Public Use
  Company Number: 2005162694

PATIENT
  Sex: Female

DRUGS (1)
  1. CELEBREX [Suspect]
     Indication: ARTHRITIS
     Dosage: 400 MG (200 MG, 2 IN 1 D),

REACTIONS (16)
  - ANXIETY [None]
  - ARTHRALGIA [None]
  - BACK PAIN [None]
  - BLOOD CHOLESTEROL INCREASED [None]
  - DEATH OF CHILD [None]
  - DEPRESSION [None]
  - FALL [None]
  - FAMILY STRESS [None]
  - GLAUCOMA [None]
  - HIP ARTHROPLASTY [None]
  - HYPERTENSION [None]
  - HYPERTONIC BLADDER [None]
  - POST PROCEDURAL COMPLICATION [None]
  - SEASONAL ALLERGY [None]
  - THROMBOSIS [None]
  - TRANSIENT ISCHAEMIC ATTACK [None]
